FAERS Safety Report 6309250-0 (Version None)
Quarter: 2009Q3

REPORT INFORMATION
  Report Type: 
  Country: None (occurrence: None)
  Receive Date: 20090814
  Receipt Date: 20070821
  Transmission Date: 20100115
  Serious: Yes (Hospitalization)
  Sender: FDA-Public Use
  Company Number: US-ASTRAZENECA-2007UW12497

PATIENT
  Age: 34 Year
  Sex: Female
  Weight: 92.5 kg

DRUGS (9)
  1. SEROQUEL [Suspect]
     Indication: INSOMNIA
     Dosage: 25MG, 100MG, 200MG AND 300MG
     Route: 048
     Dates: end: 20060301
  2. SEROQUEL [Suspect]
     Indication: BIPOLAR DISORDER
     Dosage: 25MG, 100MG, 200MG AND 300MG
     Route: 048
     Dates: end: 20060301
  3. SEROQUEL [Suspect]
     Dosage: 25-200 MG
     Route: 048
     Dates: start: 20001011
  4. SEROQUEL [Suspect]
     Dosage: 25-200 MG
     Route: 048
     Dates: start: 20001011
  5. ZYPREXA [Suspect]
     Indication: INSOMNIA
     Dates: start: 19990101
  6. ZYPREXA [Suspect]
     Indication: BIPOLAR DISORDER
     Dates: start: 19990101
  7. XARVEX [Concomitant]
     Dates: start: 19980101
  8. CLONIDINE [Concomitant]
     Dosage: 0.1-2 MG
     Route: 048
     Dates: start: 20020202
  9. PAXIL [Concomitant]
     Dosage: 25-40 MG
     Dates: start: 20020404

REACTIONS (4)
  - CARDIOMYOPATHY [None]
  - HOSPITALISATION [None]
  - TYPE 2 DIABETES MELLITUS [None]
  - UPPER LIMB FRACTURE [None]
